FAERS Safety Report 23072412 (Version 1)
Quarter: 2023Q4

REPORT INFORMATION
  Report Type: Spontaneous
  Country: US (occurrence: None)
  Receive Date: 20231017
  Receipt Date: 20231017
  Transmission Date: 20240109
  Serious: No
  Sender: FDA-Public Use
  Company Number: US-ROCHE-3406271

PATIENT
  Sex: Female

DRUGS (1)
  1. LUNSUMIO [Suspect]
     Active Substance: MOSUNETUZUMAB-AXGB
     Indication: Follicular lymphoma
     Dosage: THE PATIENT RECEIVED 60MG FOR CYCLE 1 DAY 15 AND NOW WILL GET IT MONTHLY OR EVERY 21 DAYS
     Route: 042
     Dates: start: 2023

REACTIONS (1)
  - Rash [Recovered/Resolved]

NARRATIVE: CASE EVENT DATE: 20230801
